FAERS Safety Report 9747691 (Version 1)
Quarter: 2013Q4

REPORT INFORMATION
  Report Type: Spontaneous
  Country: US (occurrence: None)
  Receive Date: 20131211
  Receipt Date: 20131211
  Transmission Date: 20140711
  Serious: No
  Sender: FDA-Public Use
  Company Number: None

PATIENT
  Age: 35 Year
  Sex: Female
  Weight: 63.5 kg

DRUGS (3)
  1. GONAL-F [Suspect]
     Indication: INFERTILITY
     Dosage: GIVEN INTO/UNDER THE SKIN
     Dates: start: 20131123, end: 20131203
  2. MENOPUR [Suspect]
     Indication: INFERTILITY
     Dosage: GIVEN INTO/UNDER THE SKIN
     Dates: start: 20131203, end: 20131203
  3. CHORIONIC GONADOTROPIN [Suspect]

REACTIONS (3)
  - Abdominal pain [None]
  - Vomiting [None]
  - Diarrhoea [None]
